FAERS Safety Report 6497424-8 (Version None)
Quarter: 2009Q4

REPORT INFORMATION
  Report Type: 
  Country: None (occurrence: None)
  Receive Date: 20091211
  Receipt Date: 20091130
  Transmission Date: 20100525
  Serious: Yes (Hospitalization)
  Sender: FDA-Public Use
  Company Number: 002385

PATIENT
  Sex: Male
  Weight: 90 kg

DRUGS (12)
  1. NEUPRO [Suspect]
     Indication: PARKINSON'S DISEASE
     Dosage: (4 MG QD TRANSDERMAL), (2 MG QD TRANSDERMAL), (6 MG QD TRANSDERMAL), (8 MG QD TRANSDERMAL), (10 MG Q
     Route: 062
     Dates: start: 20080604, end: 20080608
  2. NEUPRO [Suspect]
     Indication: PARKINSON'S DISEASE
     Dosage: (4 MG QD TRANSDERMAL), (2 MG QD TRANSDERMAL), (6 MG QD TRANSDERMAL), (8 MG QD TRANSDERMAL), (10 MG Q
     Route: 062
     Dates: start: 20080603, end: 20080619
  3. NEUPRO [Suspect]
     Indication: PARKINSON'S DISEASE
     Dosage: (4 MG QD TRANSDERMAL), (2 MG QD TRANSDERMAL), (6 MG QD TRANSDERMAL), (8 MG QD TRANSDERMAL), (10 MG Q
     Route: 062
     Dates: start: 20080623, end: 20081102
  4. NEUPRO [Suspect]
     Indication: PARKINSON'S DISEASE
     Dosage: (4 MG QD TRANSDERMAL), (2 MG QD TRANSDERMAL), (6 MG QD TRANSDERMAL), (8 MG QD TRANSDERMAL), (10 MG Q
     Route: 062
     Dates: start: 20081103, end: 20081109
  5. NEUPRO [Suspect]
     Indication: PARKINSON'S DISEASE
     Dosage: (4 MG QD TRANSDERMAL), (2 MG QD TRANSDERMAL), (6 MG QD TRANSDERMAL), (8 MG QD TRANSDERMAL), (10 MG Q
     Route: 062
     Dates: start: 20081110, end: 20081116
  6. NEUPRO [Suspect]
     Indication: PARKINSON'S DISEASE
     Dosage: (4 MG QD TRANSDERMAL), (2 MG QD TRANSDERMAL), (6 MG QD TRANSDERMAL), (8 MG QD TRANSDERMAL), (10 MG Q
     Route: 062
     Dates: start: 20090613, end: 20090622
  7. NEUPRO [Suspect]
     Indication: PARKINSON'S DISEASE
     Dosage: (4 MG QD TRANSDERMAL), (2 MG QD TRANSDERMAL), (6 MG QD TRANSDERMAL), (8 MG QD TRANSDERMAL), (10 MG Q
     Route: 062
     Dates: start: 20081117
  8. LORATADINE [Concomitant]
  9. PRIMIDONE [Concomitant]
  10. L-THYROXIN [Concomitant]
  11. PROTAPHANE [Concomitant]
  12. NOVORAPID [Concomitant]

REACTIONS (5)
  - CONDITION AGGRAVATED [None]
  - HYPERVENTILATION [None]
  - PARAESTHESIA [None]
  - PARKINSON'S DISEASE [None]
  - PYREXIA [None]
